FAERS Safety Report 17170779 (Version 1)
Quarter: 2019Q4

REPORT INFORMATION
  Report Type: Spontaneous
  Country: DK (occurrence: DK)
  Receive Date: 20191218
  Receipt Date: 20191218
  Transmission Date: 20200122
  Serious: Yes (Death, Hospitalization, Other)
  Sender: FDA-Public Use
  Company Number: DK-TOPROL ACQUISITION LLC-2019-TOP-001581

PATIENT
  Age: 76 Year
  Sex: Female

DRUGS (15)
  1. SERETIDE [Concomitant]
     Active Substance: FLUTICASONE PROPIONATE\SALMETEROL XINAFOATE
  2. DOLOL                              /00020001/ [Concomitant]
     Active Substance: ACETAMINOPHEN
  3. PANCILLIN                          /00001801/ [Concomitant]
     Active Substance: PENICILLIN V
     Dosage: UNK
     Dates: start: 20151201
  4. PANODIL [Concomitant]
     Active Substance: ACETAMINOPHEN
  5. ISOPTIN [Suspect]
     Active Substance: VERAPAMIL HYDROCHLORIDE
     Indication: ATRIAL FIBRILLATION
     Dosage: 120 MG, QD
     Route: 048
     Dates: start: 20150820
  6. FURIX [Concomitant]
  7. IMOZOP [Concomitant]
     Active Substance: ZOPICLONE
  8. KALIUMKLORID [Concomitant]
  9. LYRICA [Concomitant]
     Active Substance: PREGABALIN
  10. METOPROLOL SUCCINATE. [Suspect]
     Active Substance: METOPROLOL SUCCINATE
     Indication: ATRIAL FIBRILLATION
     Dosage: 50 MG, QD
     Route: 048
     Dates: start: 20151205, end: 20151206
  11. LOSARSTAD COMP [Concomitant]
     Active Substance: HYDROCHLOROTHIAZIDE\LOSARTAN POTASSIUM
  12. OCULAC                             /06838601/ [Concomitant]
  13. MAREVAN [Concomitant]
     Active Substance: WARFARIN SODIUM
     Indication: ATRIAL FIBRILLATION
     Dosage: UNK
     Dates: end: 20151203
  14. SPIRIVA [Concomitant]
     Active Substance: TIOTROPIUM BROMIDE MONOHYDRATE
  15. VENTOLIN [Concomitant]
     Active Substance: ALBUTEROL SULFATE

REACTIONS (7)
  - Metabolic acidosis [Fatal]
  - Blood pressure immeasurable [Fatal]
  - Loss of consciousness [Fatal]
  - Drug interaction [Unknown]
  - Bradycardia [Fatal]
  - Cardiac failure acute [Fatal]
  - Drug level increased [Fatal]

NARRATIVE: CASE EVENT DATE: 20151206
